FAERS Safety Report 23697589 (Version 1)
Quarter: 2024Q2

REPORT INFORMATION
  Report Type: Spontaneous
  Country: US (occurrence: US)
  Receive Date: 20240402
  Receipt Date: 20240402
  Transmission Date: 20240716
  Serious: No
  Sender: FDA-Public Use
  Company Number: US-TEVA-VS-3174755

PATIENT
  Age: 93 Year
  Sex: Female
  Weight: 45.36 kg

DRUGS (1)
  1. ALBUTEROL SULFATE [Suspect]
     Active Substance: ALBUTEROL SULFATE
     Indication: Asthma
     Dosage: 2 INHALATIONS EVERY 4 HOURS
     Route: 055

REACTIONS (3)
  - Illness [Not Recovered/Not Resolved]
  - Blood urine present [Not Recovered/Not Resolved]
  - Hernia [Unknown]

NARRATIVE: CASE EVENT DATE: 20240322
